FAERS Safety Report 4613987-9 (Version None)
Quarter: 2005Q1

REPORT INFORMATION
  Report Type: 
  Country: None (occurrence: None)
  Receive Date: 20050321
  Receipt Date: 20050215
  Transmission Date: 20050727
  Serious: Yes (Other)
  Sender: FDA-Public Use
  Company Number: PT-ROCHE-395516

PATIENT
  Age: 66 Year
  Sex: Male

DRUGS (4)
  1. TIKLYD [Suspect]
     Dosage: SECOND INDICATION: ACUTE MYOCARDIAL INFARCTION. REPORTED DURATION OF 8 WEEKS AND 6 DAYS
     Route: 048
     Dates: start: 20041026, end: 20041226
  2. METOPROLOL TARTRATE [Interacting]
     Indication: DRUG USE FOR UNKNOWN INDICATION
     Route: 048
     Dates: end: 20050115
  3. COVERSYL [Interacting]
     Route: 048
     Dates: start: 20041015, end: 20050107
  4. EZETROL [Interacting]
     Dosage: REPORTED DURATION OF 8 WEEKS AND 6 DAYS
     Route: 048
     Dates: start: 20041026, end: 20041226

REACTIONS (5)
  - DRUG INTERACTION [None]
  - HEPATITIS [None]
  - INSOMNIA [None]
  - PRURITUS [None]
  - URTICARIA [None]
